FAERS Safety Report 25610843 (Version 1)
Quarter: 2025Q3

REPORT INFORMATION
  Report Type: Spontaneous
  Country: US (occurrence: None)
  Receive Date: 20250725
  Receipt Date: 20250725
  Transmission Date: 20251020
  Serious: No
  Sender: FDA-CTU
  Company Number: None

PATIENT
  Age: 72 Year
  Sex: Female
  Weight: 76.5 kg

DRUGS (2)
  1. OZEMPIC [Suspect]
     Active Substance: SEMAGLUTIDE
     Indication: Type 2 diabetes mellitus
     Route: 058
     Dates: start: 20250304, end: 20250624
  2. OZEMPIC [Concomitant]
     Active Substance: SEMAGLUTIDE
     Dates: start: 20250304, end: 20250624

REACTIONS (3)
  - Allodynia [None]
  - Burning sensation [None]
  - Tongue discomfort [None]

NARRATIVE: CASE EVENT DATE: 20250624
